FAERS Safety Report 13424367 (Version 1)
Quarter: 2017Q2

REPORT INFORMATION
  Report Type: Spontaneous
  Country: GB (occurrence: GB)
  Receive Date: 20170410
  Receipt Date: 20170410
  Transmission Date: 20170830
  Serious: Yes (Other)
  Sender: FDA-Public Use
  Company Number: PHHY2017GB048275

PATIENT
  Age: 55 Year
  Sex: Female
  Weight: 72.11 kg

DRUGS (2)
  1. AMOXICILLIN. [Concomitant]
     Active Substance: AMOXICILLIN
     Indication: PRODUCT USED FOR UNKNOWN INDICATION
     Dosage: I FINISHED A 7 DAY COURSE OF AMOXICILLIN 10 DAYS PREVIOUSLY.
     Route: 065
  2. CLARITHROMYCIN. [Suspect]
     Active Substance: CLARITHROMYCIN
     Indication: LOWER RESPIRATORY TRACT INFECTION
     Dosage: 250 MG, UNK
     Route: 048
     Dates: start: 20170317, end: 20170318

REACTIONS (9)
  - Abnormal dreams [Recovering/Resolving]
  - Palpitations [Recovering/Resolving]
  - Tinnitus [Recovering/Resolving]
  - Feeling abnormal [Recovering/Resolving]
  - Chest pain [Recovering/Resolving]
  - Dry mouth [Recovering/Resolving]
  - Musculoskeletal pain [Recovering/Resolving]
  - Pain in extremity [Recovering/Resolving]
  - Erythema [Recovering/Resolving]

NARRATIVE: CASE EVENT DATE: 20170317
